FAERS Safety Report 5978645-7 (Version None)
Quarter: 2008Q4

REPORT INFORMATION
  Report Type: 
  Country: None (occurrence: None)
  Receive Date: 20081202
  Receipt Date: 20081119
  Transmission Date: 20090506
  Serious: Yes (Other)
  Sender: FDA-Public Use
  Company Number: 232086K08USA

PATIENT
  Age: 38 Year
  Sex: Female
  Weight: 54 kg

DRUGS (5)
  1. REBIF [Suspect]
     Indication: MULTIPLE SCLEROSIS
     Dosage: 44 MCG, 3 IN 1 WEEKS, SUBCUTANEOUS
     Route: 058
     Dates: start: 20020510
  2. WELLBUTRIN [Concomitant]
  3. KLONOPIN [Concomitant]
  4. TYLENOL (COTYLENOL) [Concomitant]
  5. AMANTADINE HCL [Concomitant]

REACTIONS (2)
  - CONVULSION [None]
  - DEPRESSION [None]
